FAERS Safety Report 8188197-1 (Version None)
Quarter: 2012Q1

REPORT INFORMATION
  Report Type: 
  Country: None (occurrence: None)
  Receive Date: 20120306
  Receipt Date: 20120228
  Transmission Date: 20120608
  Serious: Yes (Hospitalization)
  Sender: FDA-Public Use
  Company Number: JP-JNJFOC-20110201692

PATIENT
  Sex: Female
  Weight: 47 kg

DRUGS (25)
  1. DOXORUBICIN HCL [Suspect]
     Dosage: 19 CYCLES, TOTAL DOSE 1330 MG
     Route: 042
     Dates: start: 20090529
  2. DOXORUBICIN HCL [Suspect]
     Route: 042
  3. DOXORUBICIN HCL [Suspect]
     Route: 042
  4. DOXORUBICIN HCL [Suspect]
     Route: 042
  5. RAMELTEON [Concomitant]
     Indication: OVARIAN CANCER RECURRENT
     Route: 048
     Dates: start: 20110105, end: 20110107
  6. DOXORUBICIN HCL [Suspect]
     Route: 042
  7. DOXORUBICIN HCL [Suspect]
     Route: 042
  8. DOXORUBICIN HCL [Suspect]
     Route: 042
  9. DOXORUBICIN HCL [Suspect]
     Route: 042
     Dates: start: 20110107
  10. GRANISETRON [Concomitant]
     Indication: OVARIAN CANCER
     Route: 041
     Dates: end: 20110107
  11. APHTASOLON [Concomitant]
     Indication: STOMATITIS
     Route: 049
     Dates: end: 20110107
  12. DOXORUBICIN HCL [Suspect]
     Route: 042
  13. DOXORUBICIN HCL [Suspect]
     Route: 042
  14. DOXORUBICIN HCL [Suspect]
     Indication: OVARIAN CANCER RECURRENT
     Route: 042
  15. DOXORUBICIN HCL [Suspect]
     Route: 042
  16. DOXORUBICIN HCL [Suspect]
     Route: 042
  17. DOXORUBICIN HCL [Suspect]
     Route: 042
  18. DOXORUBICIN HCL [Suspect]
     Route: 042
  19. DOXORUBICIN HCL [Suspect]
     Route: 042
  20. DOXORUBICIN HCL [Suspect]
     Route: 042
  21. DOXORUBICIN HCL [Suspect]
     Route: 042
  22. DOXORUBICIN HCL [Suspect]
     Route: 042
  23. DOXORUBICIN HCL [Suspect]
     Route: 042
  24. DOXORUBICIN HCL [Suspect]
     Route: 042
  25. MOHRUS TAPE [Concomitant]
     Indication: BACK PAIN
     Route: 062
     Dates: end: 20110107

REACTIONS (5)
  - ARRHYTHMIA [None]
  - STOMATITIS [None]
  - NEUTROPENIA [None]
  - PALMAR-PLANTAR ERYTHRODYSAESTHESIA SYNDROME [None]
  - MYOCARDIAL INFARCTION [None]
